FAERS Safety Report 5888756-2 (Version None)
Quarter: 2008Q3

REPORT INFORMATION
  Report Type: 
  Country: None (occurrence: None)
  Receive Date: 20080917
  Receipt Date: 20080908
  Transmission Date: 20090109
  Serious: Yes (Other)
  Sender: FDA-Public Use
  Company Number: DSU-2008-01409

PATIENT
  Age: 74 Year
  Sex: Female
  Weight: 72.5755 kg

DRUGS (11)
  1. WELCHOL [Suspect]
     Indication: DRUG USE FOR UNKNOWN INDICATION
     Dosage: 2500 MG (1250 MG, BID), PER ORAL
     Route: 048
     Dates: start: 20071201
  2. COREG [Concomitant]
  3. COZAAR (LOSARTAN POTASSIUM) (LOSARTAN POTASSIUM) [Concomitant]
  4. MECLIZINE (MECLOZINE) (MECLOZINE) [Concomitant]
  5. PLAVIX [Concomitant]
  6. SPIRONOLACTONE [Concomitant]
  7. OMEPRAZOLE [Concomitant]
  8. ASPIRIN [Concomitant]
  9. SIMVASTATIN [Concomitant]
  10. PREMARIN (ESTROGENS CONJUGATED) (ESTROGENS CONJUGATED) [Concomitant]
  11. VITAMIN D (ERGOCALCIFEROL) (ERGOCALCIFEROL) [Concomitant]

REACTIONS (3)
  - CHEST PAIN [None]
  - DYSPHAGIA [None]
  - OESOPHAGEAL SPASM [None]
